FAERS Safety Report 11321302 (Version 2)
Quarter: 2015Q3

REPORT INFORMATION
  Report Type: Spontaneous
  Country: JP (occurrence: JP)
  Receive Date: 20150729
  Receipt Date: 20150904
  Transmission Date: 20151125
  Serious: Yes (Hospitalization)
  Sender: FDA-Public Use
  Company Number: JP-SA-2015SA109293

PATIENT
  Age: 46 Year
  Sex: Male

DRUGS (1)
  1. CLOPIDOGREL BISULFATE. [Suspect]
     Active Substance: CLOPIDOGREL BISULFATE
     Indication: ANTICOAGULANT THERAPY
     Route: 065

REACTIONS (5)
  - Cough [Unknown]
  - Lung infiltration [Recovering/Resolving]
  - Organising pneumonia [Recovering/Resolving]
  - Pyrexia [Recovered/Resolved]
  - Bronchoalveolar lavage abnormal [Unknown]
